FAERS Safety Report 22224465 (Version 1)
Quarter: 2023Q2

REPORT INFORMATION
  Report Type: Spontaneous
  Country: US (occurrence: None)
  Receive Date: 20230417
  Receipt Date: 20230417
  Transmission Date: 20230721
  Serious: Yes (Other)
  Sender: FDA-Public Use
  Company Number: None

PATIENT
  Sex: Female

DRUGS (1)
  1. EXCEDRIN [Suspect]
     Active Substance: ACETAMINOPHEN\ASPIRIN\CAFFEINE
     Dosage: FREQUENCY : AS NEEDED;?
     Route: 048

REACTIONS (3)
  - Pre-eclampsia [None]
  - Caesarean section [None]
  - Maternal exposure during pregnancy [None]
